FAERS Safety Report 4476813-7 (Version None)
Quarter: 2004Q4

REPORT INFORMATION
  Report Type: 
  Country: None (occurrence: None)
  Receive Date: 20041013
  Receipt Date: 20040928
  Transmission Date: 20050328
  Serious: Yes (Hospitalization)
  Sender: FDA-Public Use
  Company Number: US013895

PATIENT
  Age: 46 Year
  Sex: Female

DRUGS (2)
  1. GABITRIL [Suspect]
     Indication: DEPRESSION
     Dosage: 72 MG ONCE ORAL
     Route: 048
  2. ESCITALOPRAM OXALATE [Concomitant]

REACTIONS (11)
  - ABNORMAL DREAMS [None]
  - CONFUSIONAL STATE [None]
  - DRUG INEFFECTIVE [None]
  - EXTRAPYRAMIDAL DISORDER [None]
  - GRIMACING [None]
  - INTENTIONAL OVERDOSE [None]
  - MUTISM [None]
  - POSTURING [None]
  - PUPILLARY REFLEX IMPAIRED [None]
  - RESTLESSNESS [None]
  - STARING [None]
